FAERS Safety Report 7647305-9 (Version None)
Quarter: 2011Q3

REPORT INFORMATION
  Report Type: 
  Country: None (occurrence: None)
  Receive Date: 20110801
  Receipt Date: 20110721
  Transmission Date: 20111222
  Serious: Yes (Other)
  Sender: FDA-Public Use
  Company Number: JP-ROCHE-786453

PATIENT
  Sex: Male

DRUGS (6)
  1. ALIMTA [Suspect]
     Indication: LUNG ADENOCARCINOMA METASTATIC
     Route: 041
     Dates: start: 20110201, end: 20110621
  2. MAGNESIUM SULFATE [Concomitant]
     Route: 048
     Dates: start: 20110412, end: 20110711
  3. AVASTIN [Suspect]
     Indication: LUNG NEOPLASM MALIGNANT
     Route: 041
     Dates: start: 20110201
  4. CARBOPLATIN [Suspect]
     Indication: LUNG ADENOCARCINOMA METASTATIC
     Route: 041
     Dates: start: 20110201, end: 20110621
  5. PANVITAN [Concomitant]
     Route: 048
     Dates: start: 20110119, end: 20110711
  6. LANSOPRAZOLE [Concomitant]
     Route: 048
     Dates: start: 20110204

REACTIONS (3)
  - PAROTITIS [None]
  - BLOOD AMYLASE INCREASED [None]
  - RASH [None]
